FAERS Safety Report 4348006-5 (Version None)
Quarter: 2004Q1

REPORT INFORMATION
  Report Type: 
  Country: None (occurrence: None)
  Receive Date: 20040325
  Receipt Date: 20040113
  Transmission Date: 20041129
  Serious: No
  Sender: FDA-Public Use
  Company Number: USA030433161

PATIENT
  Age: 68 Year
  Sex: Female

DRUGS (14)
  1. FORTEO [Suspect]
     Indication: OSTEOPOROSIS
     Dates: start: 20030331
  2. CALCIUM [Concomitant]
  3. CARAFATE [Concomitant]
  4. CITRACAL (CALCIUM CITRATE) [Concomitant]
  5. DIFLUCAN [Concomitant]
  6. PEPCID AC [Concomitant]
  7. PROTONIX [Concomitant]
  8. SYNTHROID [Concomitant]
  9. TYLENOL [Concomitant]
  10. XANAX [Concomitant]
  11. FLONASE (ALPRAZOLAM) [Concomitant]
  12. ADVAIR DISKUS 100/50 [Concomitant]
  13. ATROVENT [Concomitant]
  14. SEREVENT [Concomitant]

REACTIONS (4)
  - DIZZINESS [None]
  - INJECTION SITE HAEMORRHAGE [None]
  - NASOPHARYNGITIS [None]
  - VIRAL INFECTION [None]
